FAERS Safety Report 23032560 (Version 2)
Quarter: 2023Q4

REPORT INFORMATION
  Report Type: Spontaneous
  Country: US (occurrence: US)
  Receive Date: 20231005
  Receipt Date: 20231127
  Transmission Date: 20240109
  Serious: Yes (Other)
  Sender: FDA-Public Use
  Company Number: US-AUROBINDO-AUR-APL-2023-062175

PATIENT
  Age: 73 Year
  Sex: Female

DRUGS (3)
  1. TOPIRAMATE [Suspect]
     Active Substance: TOPIRAMATE
     Indication: Product used for unknown indication
     Dosage: UNK
     Route: 065
  2. ASPIRIN [Suspect]
     Active Substance: ASPIRIN
     Indication: Back pain
     Dosage: 325 MILLIGRAM, DAILY
     Route: 048
  3. ASPIRIN [Suspect]
     Active Substance: ASPIRIN
     Dosage: OTC ORAL ASPIRIN [ASPIRIN-CONTAINING ANALGESIC] TABLET MULTIPLE TIMES PER DAY
     Route: 048

REACTIONS (1)
  - Oral mucosal exfoliation [Recovered/Resolved]
